FAERS Safety Report 17878102 (Version 1)
Quarter: 2020Q2

REPORT INFORMATION
  Report Type: Spontaneous
  Country: JP (occurrence: JP)
  Receive Date: 20200610
  Receipt Date: 20200610
  Transmission Date: 20200714
  Serious: Yes (Other)
  Sender: FDA-Public Use
  Company Number: JP-SUN PHARMACEUTICAL INDUSTRIES LTD-2020R1-248989

PATIENT
  Age: 51 Year
  Sex: Male

DRUGS (1)
  1. ASPIRIN. [Suspect]
     Active Substance: ASPIRIN
     Indication: ISCHAEMIA
     Dosage: UNK
     Route: 048

REACTIONS (2)
  - Thrombosis [Recovered/Resolved]
  - Drug ineffective [Unknown]
